FAERS Safety Report 24980179 (Version 1)
Quarter: 2025Q1

REPORT INFORMATION
  Report Type: Spontaneous
  Country: US (occurrence: None)
  Receive Date: 20250214
  Receipt Date: 20250214
  Transmission Date: 20250409
  Serious: Yes (Other)
  Sender: FDA-CTU
  Company Number: None

PATIENT
  Age: 39 Year
  Sex: Female
  Weight: 52.2 kg

DRUGS (2)
  1. CREST 3D WHITE WHITENING THERAPY DEEP CLEAN CHARCOAL [Suspect]
     Active Substance: SODIUM FLUORIDE
     Indication: Tooth whitening
     Dosage: OTHER QUANTITY : 1 OUNCE;?FREQUENCY : TWICE A DAY;?OTHER ROUTE : TOOTHPASTE (ORAL);?
     Route: 050
     Dates: start: 20241031, end: 20250214
  2. CREST 3D WHITE ADVANCED [Suspect]
     Active Substance: SODIUM MONOFLUOROPHOSPHATE
     Indication: Personal hygiene
     Route: 050
     Dates: start: 20250201, end: 20250214

REACTIONS (3)
  - Stomatitis [None]
  - Tongue disorder [None]
  - Nonspecific reaction [None]

NARRATIVE: CASE EVENT DATE: 20250213
